FAERS Safety Report 22348123 (Version 1)
Quarter: 2023Q2

REPORT INFORMATION
  Report Type: Spontaneous
  Country: EG (occurrence: EG)
  Receive Date: 20230522
  Receipt Date: 20230522
  Transmission Date: 20230722
  Serious: Yes (Hospitalization, Other)
  Sender: FDA-Public Use
  Company Number: EG-NOVOPROD-1064021

PATIENT
  Age: 491 Month
  Sex: Male
  Weight: 120 kg

DRUGS (8)
  1. INSULIN HUMAN [Suspect]
     Active Substance: INSULIN HUMAN
     Indication: Type 2 diabetes mellitus
     Dosage: 50 IU, QD(30 U AT MORNING, AND 20 U AT NIGHT)
     Route: 058
     Dates: start: 20220525
  2. ATORVASTATIN CALCIUM [Concomitant]
     Active Substance: ATORVASTATIN CALCIUM
     Indication: Blood cholesterol abnormal
     Dosage: 1 TAB/DAY
     Route: 048
  3. DIMRA [Concomitant]
     Indication: Muscle relaxant therapy
     Dosage: 2TAB/DAY
     Route: 048
  4. ASPIRIN [Concomitant]
     Active Substance: ASPIRIN
     Indication: Anticoagulant therapy
     Dosage: 1TAB/DAY
     Route: 048
  5. CIDOPHAGE [Concomitant]
     Indication: Type 2 diabetes mellitus
     Dosage: 1TAB/DAY
     Route: 048
  6. ALPHINTERN [Concomitant]
     Indication: Swelling
     Dosage: 3TAB/DAY
     Route: 048
  7. ALPHINTERN [Concomitant]
     Indication: Inflammation
  8. BENFOTIAMINE\CYANOCOBALAMIN\PYRIDOXINE HYDROCHLORIDE [Concomitant]
     Active Substance: BENFOTIAMINE\CYANOCOBALAMIN\PYRIDOXINE HYDROCHLORIDE
     Indication: Swelling

REACTIONS (1)
  - Limb injury [Not Recovered/Not Resolved]
